APPROVED DRUG PRODUCT: BIVALIRUDIN
Active Ingredient: BIVALIRUDIN
Strength: 250MG/VIAL
Dosage Form/Route: INJECTABLE;INTRAVENOUS
Application: A090816 | Product #001
Applicant: HOSPIRA INC
Approved: Jul 14, 2015 | RLD: No | RS: No | Type: DISCN